FAERS Safety Report 25792316 (Version 1)
Quarter: 2025Q3

REPORT INFORMATION
  Report Type: Spontaneous
  Country: EU (occurrence: EU)
  Receive Date: 20250911
  Receipt Date: 20250911
  Transmission Date: 20251020
  Serious: Yes (Hospitalization)
  Sender: PFIZER
  Company Number: EU-PFIZER INC-PV202500109397

PATIENT
  Age: 93 Year
  Sex: Male

DRUGS (1)
  1. VYNDAQEL [Suspect]
     Active Substance: TAFAMIDIS MEGLUMINE

REACTIONS (3)
  - Malaise [Recovering/Resolving]
  - Diarrhoea [Recovering/Resolving]
  - Blood calcium abnormal [Recovering/Resolving]
